FAERS Safety Report 13390294 (Version 1)
Quarter: 2017Q1

REPORT INFORMATION
  Report Type: Spontaneous
  Country: US (occurrence: US)
  Receive Date: 20170330
  Receipt Date: 20170330
  Transmission Date: 20170429
  Serious: Yes (Hospitalization)
  Sender: FDA-Public Use
  Company Number: None

PATIENT
  Age: 94 Year
  Sex: Male
  Weight: 80.5 kg

DRUGS (1)
  1. FUROSEMIDE. [Suspect]
     Active Substance: FUROSEMIDE
     Indication: CARDIAC FAILURE CONGESTIVE
     Route: 058
     Dates: start: 20151126, end: 20151126

REACTIONS (3)
  - Pneumonia [None]
  - Cardiac failure congestive [None]
  - Hypotension [None]

NARRATIVE: CASE EVENT DATE: 20151126
